FAERS Safety Report 10272110 (Version 1)
Quarter: 2014Q3

REPORT INFORMATION
  Report Type: Spontaneous
  Country: GR (occurrence: GR)
  Receive Date: 20140702
  Receipt Date: 20140702
  Transmission Date: 20150326
  Serious: Yes (Other)
  Sender: FDA-Public Use
  Company Number: GR-ORION CORPORATION ORION PHARMA-ENTC2014-0235

PATIENT
  Age: 82 Year
  Sex: Female

DRUGS (4)
  1. MINITRAN [Concomitant]
     Active Substance: NITROGLYCERIN
     Route: 065
  2. STALEVO [Suspect]
     Active Substance: CARBIDOPA\ENTACAPONE\LEVODOPA
     Route: 065
  3. STALEVO [Suspect]
     Active Substance: CARBIDOPA\ENTACAPONE\LEVODOPA
     Dosage: STRENGTH: 150/37.5/200 MG
     Route: 065
  4. STALEVO [Suspect]
     Active Substance: CARBIDOPA\ENTACAPONE\LEVODOPA
     Dosage: STRENGTH: 100/25/200 MG
     Route: 065

REACTIONS (8)
  - Disorientation [Recovered/Resolved]
  - Fall [Recovered/Resolved]
  - Hypotonia [Recovered/Resolved]
  - Muscle spasms [Recovered/Resolved]
  - Dehydration [Recovered/Resolved]
  - Pneumonitis [Recovered/Resolved]
  - Therapy cessation [Recovered/Resolved]
  - Grimacing [Recovered/Resolved]
